FAERS Safety Report 5286651-3 (Version None)
Quarter: 2007Q2

REPORT INFORMATION
  Report Type: 
  Country: None (occurrence: None)
  Receive Date: 20070404
  Receipt Date: 20070327
  Transmission Date: 20071010
  Serious: Yes (Other)
  Sender: FDA-Public Use
  Company Number: NO-GLAXOSMITHKLINE-B0464871A

PATIENT
  Age: 88 Year
  Sex: Male

DRUGS (5)
  1. LAMICTAL [Suspect]
     Indication: EPILEPSY
     Route: 048
     Dates: start: 20040101, end: 20070101
  2. DIURAL [Concomitant]
     Indication: RENAL FAILURE
  3. MAREVAN [Concomitant]
     Indication: ATRIAL FIBRILLATION
  4. DUPHALAC [Concomitant]
  5. SELO-ZOK [Concomitant]
     Indication: HEART RATE
     Dosage: 25MG PER DAY

REACTIONS (4)
  - CONFUSIONAL STATE [None]
  - HALLUCINATION, VISUAL [None]
  - MEMORY IMPAIRMENT [None]
  - MENTAL STATUS CHANGES [None]
